FAERS Safety Report 19068757 (Version 2)
Quarter: 2022Q2

REPORT INFORMATION
  Report Type: Report from Study
  Country: ES (occurrence: ES)
  Receive Date: 20210329
  Receipt Date: 20220630
  Transmission Date: 20220721
  Serious: Yes (Hospitalization)
  Sender: FDA-Public Use
  Company Number: ES-TAKEDA-2021TUS018754

PATIENT
  Age: 39 Year
  Sex: Female

DRUGS (42)
  1. ICATIBANT [Suspect]
     Active Substance: ICATIBANT ACETATE
     Indication: Hereditary angioedema
     Dosage: UNK
     Route: 042
  2. ICATIBANT [Suspect]
     Active Substance: ICATIBANT ACETATE
     Indication: Hereditary angioedema
     Dosage: UNK
     Route: 042
  3. HUMAN C1-ESTERASE INHIBITOR [Suspect]
     Active Substance: HUMAN C1-ESTERASE INHIBITOR
     Indication: Hereditary angioedema
     Dosage: 1000 INTERNATIONAL UNIT, Q72H
     Route: 042
     Dates: start: 20130708, end: 20140526
  4. HUMAN C1-ESTERASE INHIBITOR [Suspect]
     Active Substance: HUMAN C1-ESTERASE INHIBITOR
     Indication: Hereditary angioedema
     Dosage: 1000 INTERNATIONAL UNIT, Q72H
     Route: 042
     Dates: start: 20130708, end: 20140526
  5. HUMAN C1-ESTERASE INHIBITOR [Suspect]
     Active Substance: HUMAN C1-ESTERASE INHIBITOR
     Indication: Hereditary angioedema
     Dosage: 1000 INTERNATIONAL UNIT, Q72H
     Route: 042
     Dates: start: 20130708, end: 20140526
  6. HUMAN C1-ESTERASE INHIBITOR [Suspect]
     Active Substance: HUMAN C1-ESTERASE INHIBITOR
     Dosage: 1000 INTERNATIONAL UNIT, Q72H
     Route: 042
     Dates: start: 20161006, end: 20200907
  7. HUMAN C1-ESTERASE INHIBITOR [Suspect]
     Active Substance: HUMAN C1-ESTERASE INHIBITOR
     Dosage: 1000 INTERNATIONAL UNIT, Q72H
     Route: 042
     Dates: start: 20161006, end: 20200907
  8. HUMAN C1-ESTERASE INHIBITOR [Suspect]
     Active Substance: HUMAN C1-ESTERASE INHIBITOR
     Dosage: 1000 INTERNATIONAL UNIT, Q72H
     Route: 042
     Dates: start: 20161006, end: 20200907
  9. LORAZEPAM [Concomitant]
     Active Substance: LORAZEPAM
     Indication: Generalised anxiety disorder
     Dosage: UNK
     Route: 048
     Dates: start: 20130130, end: 20150414
  10. LORAZEPAM [Concomitant]
     Active Substance: LORAZEPAM
     Indication: Antidepressant therapy
     Dosage: UNK
     Route: 048
     Dates: start: 20150414
  11. LORAZEPAM [Concomitant]
     Active Substance: LORAZEPAM
     Indication: Anxiety
     Dosage: 1 MILLIGRAM
     Route: 048
     Dates: start: 20150603, end: 20150603
  12. LORAZEPAM [Concomitant]
     Active Substance: LORAZEPAM
     Dosage: 1 MILLIGRAM
     Route: 048
     Dates: start: 20150707, end: 20150707
  13. LORAZEPAM [Concomitant]
     Active Substance: LORAZEPAM
     Dosage: 1 MILLIGRAM
     Route: 048
     Dates: start: 20150709, end: 20150709
  14. LORAZEPAM [Concomitant]
     Active Substance: LORAZEPAM
     Dosage: 1 MILLIGRAM
     Route: 048
     Dates: start: 20150711
  15. SERTRALINE HYDROCHLORIDE [Concomitant]
     Active Substance: SERTRALINE HYDROCHLORIDE
     Indication: Generalised anxiety disorder
     Dosage: 100 MILLIGRAM, QD
     Route: 048
     Dates: start: 20131016, end: 20150414
  16. SERTRALINE HYDROCHLORIDE [Concomitant]
     Active Substance: SERTRALINE HYDROCHLORIDE
     Indication: Antidepressant therapy
     Dosage: 100 MILLIGRAM, QD
     Route: 048
     Dates: start: 20150414
  17. CIPROFLOXACIN [Concomitant]
     Active Substance: CIPROFLOXACIN
     Indication: Urinary tract infection
     Dosage: 500 MILLIGRAM, BID
     Route: 048
     Dates: start: 20150426, end: 20150503
  18. OMEPRAZOLE [Concomitant]
     Active Substance: OMEPRAZOLE
     Indication: Prophylaxis
     Dosage: 20 MILLIGRAM
     Route: 048
     Dates: start: 20150426, end: 20150617
  19. BROMAZEPAM [Concomitant]
     Active Substance: BROMAZEPAM
     Indication: Antidepressant therapy
     Dosage: 1.5 MILLIGRAM
     Route: 048
     Dates: start: 20150512
  20. RANITIDINE [Concomitant]
     Active Substance: RANITIDINE
     Indication: Prophylaxis
     Dosage: 150 MILLIGRAM
     Route: 048
     Dates: start: 20150530, end: 20150605
  21. RANITIDINE [Concomitant]
     Active Substance: RANITIDINE
     Dosage: 50 MILLIGRAM
     Route: 042
     Dates: start: 20150605, end: 20150605
  22. RANITIDINE [Concomitant]
     Active Substance: RANITIDINE
     Dosage: 150 MILLIGRAM
     Route: 048
     Dates: start: 20150605, end: 20150706
  23. RANITIDINE [Concomitant]
     Active Substance: RANITIDINE
     Dosage: 50 MILLIGRAM
     Route: 042
     Dates: start: 20150621, end: 20150621
  24. RANITIDINE [Concomitant]
     Active Substance: RANITIDINE
     Dosage: 50 MILLIGRAM
     Route: 042
     Dates: start: 20150628, end: 20150628
  25. RANITIDINE [Concomitant]
     Active Substance: RANITIDINE
     Dosage: 50 MILLIGRAM
     Route: 042
     Dates: start: 20150701, end: 20150701
  26. RANITIDINE [Concomitant]
     Active Substance: RANITIDINE
     Dosage: 150 MILLIGRAM
     Route: 048
     Dates: start: 20150707
  27. PYRIDOXINE [Concomitant]
     Active Substance: PYRIDOXINE
     Indication: Prophylaxis of nausea and vomiting
     Dosage: 10 MILLIGRAM
     Route: 048
     Dates: start: 20150530, end: 20150703
  28. ACIDO FITICO [Concomitant]
     Indication: Supplementation therapy
     Dosage: 5 MILLIGRAM
     Route: 048
     Dates: start: 20150603
  29. METOCLOPRAMIDE HYDROCHLORIDE [Concomitant]
     Active Substance: METOCLOPRAMIDE HYDROCHLORIDE
     Indication: Prophylaxis of nausea and vomiting
     Dosage: 10 MILLIGRAM
     Route: 042
     Dates: start: 20150605, end: 20150605
  30. METOCLOPRAMIDE HYDROCHLORIDE [Concomitant]
     Active Substance: METOCLOPRAMIDE HYDROCHLORIDE
     Dosage: 10 MILLIGRAM
     Route: 042
     Dates: start: 20150621, end: 20150621
  31. METOCLOPRAMIDE HYDROCHLORIDE [Concomitant]
     Active Substance: METOCLOPRAMIDE HYDROCHLORIDE
     Dosage: 10 MILLIGRAM
     Route: 042
     Dates: start: 20150701, end: 20150701
  32. SCOPOLAMINE [Concomitant]
     Active Substance: SCOPOLAMINE
     Dosage: 20 MILLIGRAM
     Route: 042
     Dates: start: 20150701, end: 20150701
  33. SCOPOLAMINE [Concomitant]
     Active Substance: SCOPOLAMINE
     Dosage: 10 MILLIGRAM
     Route: 048
     Dates: start: 20150701
  34. ACETAMINOPHEN [Concomitant]
     Active Substance: ACETAMINOPHEN
     Indication: Pyrexia
     Dosage: 2 GRAM
     Route: 042
     Dates: start: 20150703, end: 20150703
  35. THIAMINE HYDROCHLORIDE [Concomitant]
     Active Substance: THIAMINE HYDROCHLORIDE
     Indication: Hypovitaminosis
     Dosage: 250 MILLIGRAM
     Route: 048
     Dates: start: 20150708, end: 20150710
  36. PYRIDOXINE HYDROCHLORIDE [Concomitant]
     Active Substance: PYRIDOXINE HYDROCHLORIDE
     Indication: Hypovitaminosis
     Dosage: 250 MILLIGRAM
     Route: 048
     Dates: start: 20150708, end: 20150710
  37. CIANOCOBALAMINA [Concomitant]
     Indication: Hypovitaminosis
     Dosage: 1000 MICROGRAM
     Route: 048
     Dates: start: 20150708, end: 20150710
  38. FOLIC ACID [Concomitant]
     Active Substance: FOLIC ACID
     Indication: Pregnancy
     Dosage: 5 MILLIGRAM, QD
     Route: 048
     Dates: start: 20150717, end: 20150721
  39. AMOXICILLIN [Concomitant]
     Active Substance: AMOXICILLIN
     Indication: Catarrh
     Dosage: 500 MILLIGRAM, Q8HR
     Route: 048
     Dates: start: 20151211, end: 20151216
  40. IRON PROTEINSUCCINYLATE [Concomitant]
     Indication: Iron deficiency anaemia
     Dosage: 40 MILLIGRAM, QD
     Route: 048
     Dates: start: 20160328
  41. CLOMIPRAMINE [Concomitant]
     Active Substance: CLOMIPRAMINE
     Indication: Depression
     Dosage: 25 MILLIGRAM
     Route: 048
     Dates: start: 20160530, end: 20180116
  42. SYNTOCINON [Concomitant]
     Active Substance: OXYTOCIN
     Indication: Abortion induced
     Dosage: 10 DOSAGE FORM, QD
     Route: 042
     Dates: start: 20180214, end: 20180214

REACTIONS (2)
  - Hereditary angioedema [Recovered/Resolved]
  - Pregnancy [Unknown]

NARRATIVE: CASE EVENT DATE: 20180214
